FAERS Safety Report 10094934 (Version 3)
Quarter: 2014Q2

REPORT INFORMATION
  Report Type: Report from Study
  Country: JP (occurrence: JP)
  Receive Date: 20140422
  Receipt Date: 20140424
  Transmission Date: 20141212
  Serious: Yes (Hospitalization)
  Sender: FDA-Public Use
  Company Number: JP-EISAI INC-E2090-03222-CLI-JP

PATIENT
  Age: 62 Year
  Sex: Male

DRUGS (5)
  1. ZONISAMIDE/PLACEBO [Suspect]
     Indication: DEMENTIA WITH LEWY BODIES
     Dosage: DOUBLE BLIND
     Route: 048
     Dates: start: 20131226, end: 20140326
  2. ZOLOFT [Concomitant]
     Indication: ANXIETY DISORDER
  3. BROTIZOLAM [Concomitant]
     Indication: INSOMNIA
  4. MENESIT [Concomitant]
     Indication: DEMENTIA
  5. ARICEPT D [Concomitant]

REACTIONS (1)
  - Rectal cancer [Not Recovered/Not Resolved]
